FAERS Safety Report 17505288 (Version 1)
Quarter: 2020Q1

REPORT INFORMATION
  Report Type: Report from Study
  Country: DE (occurrence: DE)
  Receive Date: 20200306
  Receipt Date: 20200306
  Transmission Date: 20200409
  Serious: Yes (Death, Other)
  Sender: FDA-Public Use
  Company Number: DE-BRISTOL-MYERS SQUIBB COMPANY-BMS-2020-018075

PATIENT
  Age: 85 Year
  Sex: Male
  Weight: 85 kg

DRUGS (1)
  1. APIXABAN [Suspect]
     Active Substance: APIXABAN
     Indication: CEREBROVASCULAR ACCIDENT PROPHYLAXIS
     Dosage: 5 MG MILLGRAM(S) EVERY DAYS 2 SEPARATED DOSES
     Route: 065

REACTIONS (4)
  - Disturbance in attention [Fatal]
  - Cerebral haemorrhage [Fatal]
  - Hypertension [Fatal]
  - Hemiplegia [Fatal]

NARRATIVE: CASE EVENT DATE: 20200106
